FAERS Safety Report 5396942-3 (Version None)
Quarter: 2007Q3

REPORT INFORMATION
  Report Type: 
  Country: None (occurrence: None)
  Receive Date: 20070725
  Receipt Date: 20070712
  Transmission Date: 20080115
  Serious: Yes (Other)
  Sender: FDA-Public Use
  Company Number: IE-ELI_LILLY_AND_COMPANY-IE200703001455

PATIENT
  Age: 74 Year
  Sex: Female

DRUGS (9)
  1. CYMBALTA [Suspect]
     Dosage: 30 MG, UNK
     Dates: start: 20070125
  2. CARDURA [Concomitant]
  3. MOVICOL [Concomitant]
  4. COMTESS [Concomitant]
  5. LACTULOSE [Concomitant]
  6. MIRTAZAPINE [Concomitant]
  7. MADOPAR [Concomitant]
  8. SINEMET [Concomitant]
  9. AMITRIPTYLINE HCL [Concomitant]

REACTIONS (3)
  - DERMATITIS PSORIASIFORM [None]
  - HAEMATURIA [None]
  - RASH ERYTHEMATOUS [None]
